FAERS Safety Report 10155894 (Version 2)
Quarter: 2014Q2

REPORT INFORMATION
  Report Type: Spontaneous
  Country: IT (occurrence: IT)
  Receive Date: 20140506
  Receipt Date: 20140519
  Transmission Date: 20141212
  Serious: Yes (Other)
  Sender: FDA-Public Use
  Company Number: IT-ABBVIE-14P-083-1234561-00

PATIENT
  Age: 75 Year
  Sex: Female

DRUGS (5)
  1. SORICLAR [Suspect]
     Indication: ANIMAL BITE
     Route: 048
     Dates: start: 20140315, end: 20140319
  2. TAVANIC [Suspect]
     Indication: ANIMAL BITE
     Route: 048
     Dates: start: 20140320, end: 20140323
  3. TAVANIC [Suspect]
     Indication: ANIMAL BITE
     Route: 048
     Dates: start: 20140305, end: 20140309
  4. NEODUPLAMOX [Suspect]
     Indication: ANIMAL BITE
     Dosage: FORM STRENGHT: 875MG/125MG, 2 GRAM DAILY
     Route: 048
     Dates: start: 20140310, end: 20140314
  5. HIZAAR [Concomitant]
     Indication: HYPERTENSION
     Dosage: FORM STRENGHT: 50+12.5 MG
     Route: 048

REACTIONS (2)
  - Lichenoid keratosis [Recovering/Resolving]
  - Pruritus generalised [Recovering/Resolving]
